FAERS Safety Report 13052447 (Version 1)
Quarter: 2016Q4

REPORT INFORMATION
  Report Type: Spontaneous
  Country: JP (occurrence: JP)
  Receive Date: 20161221
  Receipt Date: 20161221
  Transmission Date: 20170207
  Serious: Yes (Death)
  Sender: FDA-Public Use
  Company Number: JP-CELGENEUS-JPN-2016122778

PATIENT
  Age: 71 Year
  Sex: Male

DRUGS (2)
  1. POMALYST [Suspect]
     Active Substance: POMALIDOMIDE
     Indication: CARDIAC AMYLOIDOSIS
     Dosage: 2 MG
     Route: 048
     Dates: start: 20161011, end: 20161116
  2. LENADEX [Suspect]
     Active Substance: DEXAMETHASONE ACETATE
     Indication: CARDIAC AMYLOIDOSIS
     Route: 048
     Dates: start: 20161011, end: 20161116

REACTIONS (1)
  - Cardiac amyloidosis [Fatal]

NARRATIVE: CASE EVENT DATE: 20161122
